FAERS Safety Report 23023993 (Version 1)
Quarter: 2023Q4

REPORT INFORMATION
  Report Type: Report from Study
  Country: US (occurrence: US)
  Receive Date: 20231003
  Receipt Date: 20231003
  Transmission Date: 20240110
  Serious: Yes (Other)
  Sender: FDA-Public Use
  Company Number: US-BEIGENE-BGN-2023-010748

PATIENT

DRUGS (2)
  1. BRUKINSA [Suspect]
     Active Substance: ZANUBRUTINIB
     Indication: Chronic lymphocytic leukaemia
     Dosage: 320 MILLIGRAM, QD
     Route: 048
     Dates: start: 20230316, end: 20230906
  2. BRUKINSA [Suspect]
     Active Substance: ZANUBRUTINIB
     Dosage: UNK
     Dates: start: 20230914

REACTIONS (4)
  - Procedural haemorrhage [Unknown]
  - Skin lesion [Unknown]
  - Skin operation [Unknown]
  - Post procedural discharge [Unknown]

NARRATIVE: CASE EVENT DATE: 20230829
